FAERS Safety Report 4549181-X (Version None)
Quarter: 2005Q1

REPORT INFORMATION
  Report Type: 
  Country: None (occurrence: None)
  Receive Date: 20050111
  Receipt Date: 20041231
  Transmission Date: 20050727
  Serious: Yes (Hospitalization)
  Sender: FDA-Public Use
  Company Number: PHRM2004FR03813

PATIENT
  Age: 82 Year
  Sex: Female

DRUGS (2)
  1. MEDIATENSYL [Suspect]
     Dosage: 30 MG/DAY
     Route: 048
  2. BENAZEPRIL HCL AND HYDROCHLOROTHIAZIDE [Suspect]
     Indication: HYPERTENSION
     Route: 048

REACTIONS (3)
  - HYPONATRAEMIA [None]
  - RIGHT VENTRICULAR FAILURE [None]
  - VOMITING [None]
